FAERS Safety Report 9883562 (Version 1)
Quarter: 2014Q1

REPORT INFORMATION
  Report Type: Spontaneous
  Country: IN (occurrence: IN)
  Receive Date: 20140210
  Receipt Date: 20140210
  Transmission Date: 20141002
  Serious: Yes (Hospitalization, Other)
  Sender: FDA-Public Use
  Company Number: IN-SUN PHARMACEUTICAL INDUSTRIES LTD-2014SUN00242

PATIENT
  Sex: 0

DRUGS (1)
  1. PANTOPRAZOLE SODIUM DR TABS, USP 40MG [Suspect]
     Indication: GASTROOESOPHAGEAL REFLUX DISEASE
     Dosage: 40 MG, ONCE DAILY 30 MINUTES BEFORE MEALS FOR 4 WEEKS
     Route: 048

REACTIONS (1)
  - Pancreatitis acute [Recovered/Resolved]
